FAERS Safety Report 9748920 (Version 1)
Quarter: 2013Q4

REPORT INFORMATION
  Report Type: Spontaneous
  Country: CH (occurrence: None)
  Receive Date: 20131209
  Receipt Date: 20131209
  Transmission Date: 20140711
  Serious: Yes (Hospitalization)
  Sender: FDA-Public Use
  Company Number: CH-013909

PATIENT
  Age: 62 Year
  Sex: Female
  Weight: 90 kg

DRUGS (4)
  1. DESMOPRESSIN [Suspect]
     Indication: PRODUCT USED FOR UNKNOWN INDICATION
     Dosage: (DOSAGE AND DOSAGE RECOMMENDATION NOT KNOWN. START OF TREATMENT NOT KNOWN, ORAL)
     Route: 048
     Dates: end: 20130930
  2. SEROPRAM [Suspect]
     Indication: PRODUCT USED FOR UNKNOWN INDICATION
     Dosage: (DOSAGE AND DOSAGE RECOMMENDATION NOT KNOWN. START OF TREATMENT NOT KNOWN. ORAL)
     Route: 048
  3. XANAX [Suspect]
     Indication: PRODUCT USED FOR UNKNOWN INDICATION
     Dosage: (DOSAGE, DOSAGE RECOMMENDATION AND START OF TREATMENT NOT KNOWN. ORAL)
     Route: 048
     Dates: end: 20130930
  4. MIDAZOLAM MALEATE [Suspect]
     Indication: PRODUCT USED FOR UNKNOWN INDICATION
     Dosage: (DOSAGE AND DOSAGE RECOMMENDATION AND START OF TREATMENT NOT KNOWN. ORAL)
     Route: 048
     Dates: end: 20130930

REACTIONS (6)
  - Hyponatraemia [None]
  - Drug abuse [None]
  - Altered state of consciousness [None]
  - Somnolence [None]
  - Dysarthria [None]
  - Labelled drug-drug interaction medication error [None]
